FAERS Safety Report 7496884-3 (Version None)
Quarter: 2011Q2

REPORT INFORMATION
  Report Type: 
  Country: None (occurrence: None)
  Receive Date: 20110516
  Receipt Date: 20110510
  Transmission Date: 20111010
  Serious: Yes (Other)
  Sender: FDA-Public Use
  Company Number: GB-ACCORD-009086

PATIENT
  Sex: Female
  Weight: 82 kg

DRUGS (5)
  1. MAXALT(MAXALT) [Concomitant]
  2. SUMATRIPTAN(SUMATRIPTAN) [Concomitant]
  3. DOMPERIDONE(DOMPERIDONE) [Concomitant]
  4. IMIGRAN(IMIGRAN) [Concomitant]
  5. TOPIRAMATE [Suspect]
     Indication: PRODUCT USED FOR UNKNOWN INDICATION
     Dosage: 5.00-MG-2.00 TIMES PER-1.0DAYS / ORAL
     Route: 048
     Dates: start: 20110308, end: 20110414

REACTIONS (4)
  - CONFUSIONAL STATE [None]
  - CEREBROVASCULAR ACCIDENT [None]
  - PARAESTHESIA [None]
  - AMNESIA [None]
